FAERS Safety Report 25022367 (Version 2)
Quarter: 2025Q2

REPORT INFORMATION
  Report Type: Spontaneous
  Country: US (occurrence: US)
  Receive Date: 20250228
  Receipt Date: 20250612
  Transmission Date: 20250716
  Serious: No
  Sender: ALEXION PHARMACEUTICALS
  Company Number: US-AstraZeneca-CH-00816063AP

PATIENT
  Age: 43 Year

DRUGS (1)
  1. BREZTRI [Suspect]
     Active Substance: BUDESONIDE\FORMOTEROL\GLYCOPYRROLATE

REACTIONS (4)
  - Wrong technique in device usage process [Unknown]
  - Treatment noncompliance [Unknown]
  - Device delivery system issue [Unknown]
  - Product cleaning inadequate [Unknown]
